FAERS Safety Report 13085237 (Version 1)
Quarter: 2017Q1

REPORT INFORMATION
  Report Type: Spontaneous
  Country: FR (occurrence: FR)
  Receive Date: 20170104
  Receipt Date: 20170104
  Transmission Date: 20170428
  Serious: Yes (Death, Hospitalization)
  Sender: FDA-Public Use
  Company Number: FR-PFIZER INC-2016603686

PATIENT
  Age: 69 Year
  Sex: Female

DRUGS (6)
  1. IDEOS [Suspect]
     Active Substance: CALCIUM CARBONATE\CHOLECALCIFEROL
     Indication: OSTEOPOROSIS
     Dosage: 500 MG/400 IU
     Route: 048
     Dates: start: 20070716, end: 20070816
  2. DOLIPRANE [Suspect]
     Active Substance: ACETAMINOPHEN
     Dosage: 1 G, 1X/DAY
     Route: 048
     Dates: end: 20070816
  3. DOLIPRANE [Suspect]
     Active Substance: ACETAMINOPHEN
     Indication: PAIN
     Dosage: 1 G, 1X/DAY
     Route: 048
     Dates: start: 20070716, end: 20070728
  4. PROTELOS [Suspect]
     Active Substance: STRONTIUM RANELATE
     Indication: OSTEOPOROSIS
     Dosage: UNK
     Route: 048
     Dates: start: 20070716, end: 20070814
  5. SOLU-MEDROL [Suspect]
     Active Substance: METHYLPREDNISOLONE SODIUM SUCCINATE
     Dosage: UNK
     Route: 048
     Dates: start: 20070816, end: 20070821
  6. VOLTARENE [Suspect]
     Active Substance: DICLOFENAC SODIUM
     Indication: PAIN
     Dosage: UNK
     Route: 003
     Dates: start: 20070716, end: 20070816

REACTIONS (7)
  - Drug reaction with eosinophilia and systemic symptoms [Fatal]
  - Pyrexia [Fatal]
  - Eosinophilia [Fatal]
  - Shock [Unknown]
  - Rash [Fatal]
  - Hepatitis fulminant [Fatal]
  - Acute kidney injury [Unknown]

NARRATIVE: CASE EVENT DATE: 20070808
